FAERS Safety Report 11233418 (Version 5)
Quarter: 2016Q1

REPORT INFORMATION
  Report Type: Report from Study
  Country: US (occurrence: US)
  Receive Date: 20150702
  Receipt Date: 20160118
  Transmission Date: 20160525
  Serious: Yes (Other)
  Sender: FDA-Public Use
  Company Number: US-AMGEN-USASL2015063510

PATIENT
  Age: 49 Year
  Sex: Female

DRUGS (1)
  1. ENBREL [Suspect]
     Active Substance: ETANERCEPT
     Indication: RHEUMATOID ARTHRITIS
     Dosage: 50 MG, WEEKLY
     Route: 065
     Dates: start: 20140917

REACTIONS (17)
  - Pain [Unknown]
  - Hot flush [Unknown]
  - Full blood count decreased [Unknown]
  - Contusion [Not Recovered/Not Resolved]
  - Arthralgia [Not Recovered/Not Resolved]
  - Carpal tunnel syndrome [Not Recovered/Not Resolved]
  - Neck pain [Unknown]
  - Back pain [Unknown]
  - Loose tooth [Unknown]
  - Headache [Unknown]
  - Tooth loss [Unknown]
  - Upper respiratory tract infection [Unknown]
  - Anosmia [Unknown]
  - Pain in extremity [Not Recovered/Not Resolved]
  - Musculoskeletal pain [Unknown]
  - Night sweats [Unknown]
  - Dizziness [Unknown]

NARRATIVE: CASE EVENT DATE: 2015
